FAERS Safety Report 6762971-8 (Version None)
Quarter: 2010Q2

REPORT INFORMATION
  Report Type: 
  Country: None (occurrence: None)
  Receive Date: 20100609
  Receipt Date: 20100602
  Transmission Date: 20101027
  Serious: Yes (Other)
  Sender: FDA-Public Use
  Company Number: US-BAYER-200941918NA

PATIENT
  Age: 46 Year
  Sex: Female
  Weight: 86 kg

DRUGS (2)
  1. AVELOX [Suspect]
     Indication: BRONCHITIS
     Dates: start: 20091124, end: 20091201
  2. AVELOX [Suspect]
     Dosage: SAMPLE
     Dates: start: 20091201

REACTIONS (12)
  - ABASIA [None]
  - ANAPHYLACTIC REACTION [None]
  - COORDINATION ABNORMAL [None]
  - COUGH [None]
  - DIARRHOEA [None]
  - MYALGIA [None]
  - PALMAR ERYTHEMA [None]
  - PARAESTHESIA [None]
  - PRURITUS [None]
  - RASH GENERALISED [None]
  - SPEECH DISORDER [None]
  - VOMITING [None]
